FAERS Safety Report 13887480 (Version 1)
Quarter: 2017Q3

REPORT INFORMATION
  Report Type: Spontaneous
  Country: US (occurrence: US)
  Receive Date: 20170821
  Receipt Date: 20170821
  Transmission Date: 20171127
  Serious: No
  Sender: FDA-Public Use
  Company Number: US-ROCHE-754314

PATIENT
  Age: 50 Year
  Sex: Male

DRUGS (16)
  1. METHOTREXATE. [Concomitant]
     Active Substance: METHOTREXATE
     Route: 048
  2. VALTREX [Concomitant]
     Active Substance: VALACYCLOVIR HYDROCHLORIDE
     Route: 048
  3. PEPCID [Concomitant]
     Active Substance: FAMOTIDINE
     Route: 048
  4. PREDNISONE. [Concomitant]
     Active Substance: PREDNISONE
     Route: 065
  5. FISH OIL [Concomitant]
     Active Substance: FISH OIL
     Route: 065
  6. AMLODIPINE BESYLATE. [Suspect]
     Active Substance: AMLODIPINE BESYLATE
     Indication: PRODUCT USED FOR UNKNOWN INDICATION
     Route: 065
  7. MVI [Concomitant]
     Active Substance: VITAMINS
     Dosage: FORM: PILL
     Route: 048
  8. PRAVASTATIN SODIUM. [Concomitant]
     Active Substance: PRAVASTATIN SODIUM
     Route: 065
  9. ASPIRIN. [Concomitant]
     Active Substance: ASPIRIN
     Dosage: 1 TAB AFTER EVERY MEAL
     Route: 065
  10. ACTEMRA [Suspect]
     Active Substance: TOCILIZUMAB
     Indication: RHEUMATOID ARTHRITIS
     Dosage: FORM: INFUSION
     Route: 042
  11. TOPROL XL [Concomitant]
     Active Substance: METOPROLOL SUCCINATE
     Route: 048
  12. LUNESTA [Concomitant]
     Active Substance: ESZOPICLONE
     Indication: SLEEP DISORDER THERAPY
     Dosage: AT BEDTIME AS NEEDED
     Route: 065
  13. VITAMIN D [Concomitant]
     Active Substance: CHOLECALCIFEROL
     Route: 065
  14. GLUCOSAMINE [Concomitant]
     Active Substance: GLUCOSAMINE
     Route: 065
  15. PROTONIX [Concomitant]
     Active Substance: PANTOPRAZOLE SODIUM
     Dosage: 30 MINS BEFORE BREAKFAST
     Route: 065
  16. TRIAMCINOLONE ACETONIDE. [Concomitant]
     Active Substance: TRIAMCINOLONE ACETONIDE
     Route: 065

REACTIONS (1)
  - Erythema multiforme [Recovering/Resolving]
